FAERS Safety Report 7132043-1 (Version None)
Quarter: 2010Q4

REPORT INFORMATION
  Report Type: 
  Country: None (occurrence: None)
  Receive Date: 20101202
  Receipt Date: 20101119
  Transmission Date: 20110411
  Serious: Yes (Other)
  Sender: FDA-Public Use
  Company Number: FR-ASTRAZENECA-2010SE55501

PATIENT
  Age: 85 Year
  Sex: Female

DRUGS (4)
  1. ZESTRIL [Suspect]
     Indication: HYPERTENSION
     Route: 048
  2. NEXIUM [Concomitant]
     Indication: GASTRIC DISORDER
  3. LUCENTIS [Concomitant]
     Indication: MACULAR DEGENERATION
  4. LEXOMIL [Concomitant]
     Dosage: AS REQUIRED

REACTIONS (2)
  - EYE HAEMORRHAGE [None]
  - EYE OEDEMA [None]
